FAERS Safety Report 18521462 (Version 1)
Quarter: 2020Q4

REPORT INFORMATION
  Report Type: Spontaneous
  Country: RO (occurrence: RO)
  Receive Date: 20201119
  Receipt Date: 20201119
  Transmission Date: 20210114
  Serious: Yes (Death, Hospitalization, Other)
  Sender: FDA-Public Use
  Company Number: RO-ACCORD-208260

PATIENT
  Age: 18 Year
  Sex: Female

DRUGS (24)
  1. CELLCEPT [Suspect]
     Active Substance: MYCOPHENOLATE MOFETIL\MYCOPHENOLATE MOFETIL HYDROCHLORIDE
     Indication: PRODUCT USED FOR UNKNOWN INDICATION
     Route: 048
     Dates: start: 200812, end: 200902
  2. MEDROL [Suspect]
     Active Substance: METHYLPREDNISOLONE
     Indication: PROPHYLAXIS AGAINST TRANSPLANT REJECTION
     Dosage: 16 MG, QD
     Route: 048
     Dates: start: 200802, end: 200812
  3. PROGRAF [Suspect]
     Active Substance: TACROLIMUS
     Indication: IMMUNOSUPPRESSION
     Dosage: 5 MG, QD
     Route: 048
     Dates: start: 200903, end: 201009
  4. METHYLPREDNISOLONE. [Suspect]
     Active Substance: METHYLPREDNISOLONE
     Indication: RENAL TRANSPLANT
     Dosage: 8 MG, QD
     Route: 048
     Dates: start: 200812, end: 200903
  5. MYFORTIC [Suspect]
     Active Substance: MYCOPHENOLATE SODIUM
     Indication: PRODUCT USED FOR UNKNOWN INDICATION
     Route: 048
     Dates: start: 20150209, end: 20150226
  6. THYMOGLOBULIN [Suspect]
     Active Substance: LAPINE T-LYMPHOCYTE IMMUNE GLOBULIN
     Indication: RENAL TRANSPLANT
     Dosage: UNK
     Route: 042
  7. GANCICLOVIR. [Concomitant]
     Active Substance: GANCICLOVIR
     Indication: ANTIVIRAL TREATMENT
  8. VALGANCICLOVIR/VALGANCICLOVIR HYDROCHLORIDE [Concomitant]
     Active Substance: VALGANCICLOVIR
     Indication: ANTIVIRAL TREATMENT
  9. CELLCEPT [Suspect]
     Active Substance: MYCOPHENOLATE MOFETIL\MYCOPHENOLATE MOFETIL HYDROCHLORIDE
     Indication: RENAL TRANSPLANT
     Dosage: 2 DF, (750 MG IN MORNING, 500 MG IN NIGHT),TWICE DAILY,2 DOSAGE FORM
     Route: 048
     Dates: start: 201009, end: 201105
  10. MYFORTIC [Suspect]
     Active Substance: MYCOPHENOLATE SODIUM
     Indication: PRODUCT USED FOR UNKNOWN INDICATION
     Route: 048
     Dates: start: 201203, end: 20150203
  11. MYFORTIC [Suspect]
     Active Substance: MYCOPHENOLATE SODIUM
     Indication: PRODUCT USED FOR UNKNOWN INDICATION
     Route: 048
     Dates: start: 20150202, end: 20150209
  12. MEDROL [Suspect]
     Active Substance: METHYLPREDNISOLONE
     Indication: PRODUCT USED FOR UNKNOWN INDICATION
     Route: 048
     Dates: start: 200903, end: 201301
  13. RAPAMUNE [Suspect]
     Active Substance: SIROLIMUS
     Indication: PROPHYLAXIS AGAINST TRANSPLANT REJECTION
     Route: 048
     Dates: start: 20150330, end: 20150515
  14. SIROLIMUS. [Suspect]
     Active Substance: SIROLIMUS
     Indication: RENAL TRANSPLANT
     Dosage: UNK
     Route: 065
  15. MYFORTIC [Suspect]
     Active Substance: MYCOPHENOLATE SODIUM
     Indication: RENAL TRANSPLANT
     Dosage: 540 MG IN MORNING, 360 MG IN NIGHT), TWICE DAILY,2 CYCLICAL
     Route: 048
     Dates: start: 201103, end: 201203
  16. MYCOPHENOLIC ACID. [Suspect]
     Active Substance: MYCOPHENOLIC ACID
     Indication: PRODUCT USED FOR UNKNOWN INDICATION
     Dosage: 1000 MG, QD
     Route: 048
     Dates: start: 200902, end: 201009
  17. PROGRAF [Suspect]
     Active Substance: TACROLIMUS
     Indication: PROPHYLAXIS AGAINST TRANSPLANT REJECTION
     Dosage: 3 MG, QD
     Route: 048
     Dates: start: 201301, end: 201502
  18. PROGRAF [Suspect]
     Active Substance: TACROLIMUS
     Indication: PRODUCT USED FOR UNKNOWN INDICATION
     Route: 048
     Dates: start: 200808, end: 200812
  19. CELLCEPT [Suspect]
     Active Substance: MYCOPHENOLATE MOFETIL\MYCOPHENOLATE MOFETIL HYDROCHLORIDE
     Indication: PROPHYLAXIS AGAINST TRANSPLANT REJECTION
     Dosage: 1000 MG, QD
     Route: 048
     Dates: start: 200808, end: 200912
  20. PROGRAF [Suspect]
     Active Substance: TACROLIMUS
     Indication: PRODUCT USED FOR UNKNOWN INDICATION
     Dosage: 1 MG IN MORNING, 0.5 MG IN NIGHT, TWICE DAILY.2 CYCLICAL
     Route: 048
     Dates: start: 201502, end: 20150330
  21. PROGRAF [Suspect]
     Active Substance: TACROLIMUS
     Indication: PRODUCT USED FOR UNKNOWN INDICATION
     Dosage: 1 DF, BID 2 MG IN MORNING, 1.5 MG IN NIGHT),TWICE DAILY.1 DF
     Route: 048
     Dates: start: 201009, end: 201301
  22. MYFORTIC [Suspect]
     Active Substance: MYCOPHENOLATE SODIUM
     Indication: RENAL TRANSPLANT
     Dosage: 1 DF, BID(540 MG IN MORNING, 360 MG IN NIGHT),TWICE DAILY,2 DOSAGE FORM
     Route: 048
     Dates: start: 201103, end: 201203
  23. PROGRAF [Suspect]
     Active Substance: TACROLIMUS
     Indication: PRODUCT USED FOR UNKNOWN INDICATION
     Dosage: 3 MG, QD
     Route: 048
     Dates: start: 200812, end: 200902
  24. PROGRAF [Suspect]
     Active Substance: TACROLIMUS
     Indication: RENAL TRANSPLANT
     Dosage: 6 MG, QD
     Route: 048
     Dates: start: 200902, end: 200903

REACTIONS (21)
  - Ascites [Fatal]
  - Epstein-Barr virus infection [Fatal]
  - Pleurisy [Fatal]
  - Abdominal pain lower [Fatal]
  - Dizziness [Fatal]
  - Dysphagia [Fatal]
  - Jaundice [Fatal]
  - Lymphopenia [Fatal]
  - Anaemia [Fatal]
  - Stomatitis [Fatal]
  - Salivary gland mass [Fatal]
  - Lymphadenopathy [Fatal]
  - Thymus enlargement [Fatal]
  - Pericarditis [Fatal]
  - Asthenia [Fatal]
  - Hodgkin^s disease lymphocyte depletion type stage unspecified [Fatal]
  - Decreased appetite [Fatal]
  - Urinary tract infection [Recovered/Resolved]
  - Pyrexia [Fatal]
  - Post transplant lymphoproliferative disorder [Fatal]
  - Leukopenia [Fatal]

NARRATIVE: CASE EVENT DATE: 200810
